FAERS Safety Report 22789860 (Version 14)
Quarter: 2025Q2

REPORT INFORMATION
  Report Type: Spontaneous
  Country: US (occurrence: US)
  Receive Date: 20230804
  Receipt Date: 20250625
  Transmission Date: 20250716
  Serious: No
  Sender: DAIICHI
  Company Number: US-DAIICHI SANKYO, INC.-DSU-2023-131173AA

PATIENT
  Sex: Female

DRUGS (5)
  1. TURALIO [Suspect]
     Active Substance: PEXIDARTINIB HYDROCHLORIDE
     Indication: Malignant connective tissue neoplasm
     Dosage: 250 MG, BID
     Route: 048
     Dates: start: 20230607
  2. TURALIO [Suspect]
     Active Substance: PEXIDARTINIB HYDROCHLORIDE
     Indication: Soft tissue sarcoma
     Route: 048
     Dates: start: 20230607
  3. TURALIO [Suspect]
     Active Substance: PEXIDARTINIB HYDROCHLORIDE
     Indication: Giant cell tumour of tendon sheath
     Route: 065
     Dates: end: 20240926
  4. TURALIO [Suspect]
     Active Substance: PEXIDARTINIB HYDROCHLORIDE
     Route: 065
  5. TURALIO [Suspect]
     Active Substance: PEXIDARTINIB HYDROCHLORIDE
     Route: 048

REACTIONS (30)
  - Stress [Recovered/Resolved]
  - Muscular weakness [Recovered/Resolved]
  - Joint instability [Recovered/Resolved]
  - Gait disturbance [Recovered/Resolved]
  - Anaemia [Recovered/Resolved]
  - Depressed mood [Recovered/Resolved]
  - Depression [Recovered/Resolved]
  - Tooth disorder [Recovered/Resolved]
  - Tooth infection [Not Recovered/Not Resolved]
  - Lacrimation increased [Recovered/Resolved]
  - Lacrimation increased [Recovering/Resolving]
  - Hair colour changes [Recovered/Resolved]
  - Blood cholesterol increased [Recovered/Resolved]
  - Diarrhoea [Recovered/Resolved]
  - Fatigue [Recovered/Resolved]
  - Constipation [Recovered/Resolved]
  - Eye swelling [Recovered/Resolved]
  - Orbital oedema [Recovering/Resolving]
  - Face oedema [Not Recovered/Not Resolved]
  - Chest pain [Not Recovered/Not Resolved]
  - Anaemia [Not Recovered/Not Resolved]
  - Eye swelling [Not Recovered/Not Resolved]
  - Limb injury [Not Recovered/Not Resolved]
  - Fall [Not Recovered/Not Resolved]
  - Balance disorder [Not Recovered/Not Resolved]
  - Depressed mood [Not Recovered/Not Resolved]
  - Product dose omission in error [Recovered/Resolved]
  - Product dose omission issue [Not Recovered/Not Resolved]
  - Extra dose administered [Not Recovered/Not Resolved]
  - Product use issue [Not Recovered/Not Resolved]

NARRATIVE: CASE EVENT DATE: 20230101
